FAERS Safety Report 14825698 (Version 3)
Quarter: 2018Q2

REPORT INFORMATION
  Report Type: Report from Study
  Country: US (occurrence: US)
  Receive Date: 20180430
  Receipt Date: 20180608
  Transmission Date: 20180711
  Serious: No
  Sender: FDA-Public Use
  Company Number: US-AMGEN-USASP2018055649

PATIENT
  Age: 73 Year
  Sex: Female

DRUGS (1)
  1. ENBREL [Suspect]
     Active Substance: ETANERCEPT
     Indication: RHEUMATOID ARTHRITIS
     Dosage: 50 MG, QWK
     Route: 065
     Dates: start: 201801, end: 201805

REACTIONS (9)
  - Injection site haemorrhage [Unknown]
  - Injection site pain [Unknown]
  - Injection site discolouration [Unknown]
  - Drug effect decreased [Unknown]
  - Condition aggravated [Unknown]
  - Fibromyalgia [Unknown]
  - Wrong technique in product usage process [Unknown]
  - Malaise [Unknown]
  - Accidental exposure to product [Unknown]

NARRATIVE: CASE EVENT DATE: 2018
